FAERS Safety Report 19698633 (Version 1)
Quarter: 2021Q3

REPORT INFORMATION
  Report Type: Spontaneous
  Country: DE (occurrence: DE)
  Receive Date: 20210813
  Receipt Date: 20210813
  Transmission Date: 20211014
  Serious: No
  Sender: FDA-Public Use
  Company Number: DE-ALKEM LABORATORIES LIMITED-DE-ALKEM-2021-04087

PATIENT
  Age: 41 Year
  Sex: Male
  Weight: 74 kg

DRUGS (1)
  1. PREGABALIN. [Suspect]
     Active Substance: PREGABALIN
     Indication: SUBARACHNOID HAEMORRHAGE
     Dosage: 200 MILLIGRAM, QD
     Route: 048
     Dates: start: 202104

REACTIONS (1)
  - Binge eating [Not Recovered/Not Resolved]

NARRATIVE: CASE EVENT DATE: 202104
